FAERS Safety Report 11448902 (Version 4)
Quarter: 2015Q4

REPORT INFORMATION
  Report Type: Spontaneous
  Country: US (occurrence: None)
  Receive Date: 20150902
  Receipt Date: 20151109
  Transmission Date: 20160304
  Serious: Yes (Other)
  Sender: FDA-Public Use
  Company Number: US-MDT-ADR-2015-01682

PATIENT
  Age: 46 Year
  Sex: Female

DRUGS (2)
  1. CLONIDINE. [Suspect]
     Active Substance: CLONIDINE
     Indication: BACK PAIN
     Dosage: 101.23 MCG/DAY
  2. COMPOUNDED BACLOFEN INTRATHECAL 280 MCG/ML [Suspect]
     Active Substance: BACLOFEN
     Indication: BACK PAIN
     Dosage: 74.59 MCG/DAY

REACTIONS (5)
  - Pain [None]
  - Depressed level of consciousness [None]
  - Incorrect drug administration rate [None]
  - Lethargy [None]
  - Device malfunction [None]
